FAERS Safety Report 13854984 (Version 1)
Quarter: 2017Q3

REPORT INFORMATION
  Report Type: Spontaneous
  Country: US (occurrence: US)
  Receive Date: 20170810
  Receipt Date: 20170810
  Transmission Date: 20171127
  Serious: No
  Sender: FDA-Public Use
  Company Number: US-BRAINTREE LABORATORIES-170254

PATIENT
  Age: 67 Year
  Sex: Female

DRUGS (1)
  1. PEG-3350 AND ELECTROLYTES [Suspect]
     Active Substance: POLYETHYLENE GLYCOL 3350\POTASSIUM CHLORIDE\SODIUM BICARBONATE\SODIUM CHLORIDE\SODIUM SULFATE\SODIUM SULFATE ANHYDROUS
     Indication: COLONOSCOPY
     Dosage: 1.4L
     Route: 048
     Dates: start: 20170430, end: 20170430

REACTIONS (2)
  - Abdominal pain [None]
  - Abdominal distension [None]

NARRATIVE: CASE EVENT DATE: 20170430
